FAERS Safety Report 8984634 (Version 1)
Quarter: 2012Q4

REPORT INFORMATION
  Report Type: Spontaneous
  Country: MA (occurrence: None)
  Receive Date: 20121214
  Receipt Date: 20121214
  Transmission Date: 20130627
  Serious: Yes (Hospitalization)
  Sender: FDA-Public Use
  Company Number: DSA_61170_2012

PATIENT

DRUGS (2)
  1. HYALURONIC ACID [Suspect]
     Indication: PAIN
     Dosage: (DF intra-articular)
  2. HYALURONIC ACID [Suspect]
     Indication: GAIT DISTURBANCE
     Dosage: (DF intra-articular)

REACTIONS (1)
  - Arthritis [None]
